FAERS Safety Report 20161508 (Version 1)
Quarter: 2021Q4

REPORT INFORMATION
  Report Type: Spontaneous
  Country: FR (occurrence: FR)
  Receive Date: 20211208
  Receipt Date: 20211208
  Transmission Date: 20220303
  Serious: Yes (Hospitalization, Other)
  Sender: FDA-Public Use
  Company Number: None

PATIENT
  Age: 59 Year
  Sex: Male
  Weight: 64 kg

DRUGS (16)
  1. GLICLAZIDE [Suspect]
     Active Substance: GLICLAZIDE
     Dosage: THERAPY START DATE :THERAPY END DATE:ASKU
     Route: 065
  2. AMOXICILLIN [Suspect]
     Active Substance: AMOXICILLIN
     Dosage: 3 GRAM DAILY; TID,THERAPY START DATE :THERAPY END DATE :ASKU
     Route: 065
  3. HYDROXYZINE [Suspect]
     Active Substance: HYDROXYZINE HYDROCHLORIDE
     Dosage: 50 UNK, BID,THERAPY START DATE :THERAPY END DATE:ASKU,ADDITIONAL INFORMATION:ATARAX
     Route: 065
  4. ESOMEPRAZOLE MAGNESIUM [Suspect]
     Active Substance: ESOMEPRAZOLE MAGNESIUM
     Dosage: 40 MILLIGRAM DAILY; QD,THERAPY START DATE:THERAPY END DATE:ASKU
     Route: 065
  5. INSULIN GLARGINE [Suspect]
     Active Substance: INSULIN GLARGINE
     Dosage: 100 U / ML,THERAPY START DATE :THERAPY END DATE :ASKU,ADDITIONAL INFORMATION:ABASAGLAR
     Route: 065
  6. DEXAMETHASONE [Suspect]
     Active Substance: DEXAMETHASONE
     Dosage: THERAPY START DATE ,THERAPY END DATE:ASKU
     Route: 065
  7. FONDAPARINUX SODIUM [Suspect]
     Active Substance: FONDAPARINUX SODIUM
     Dosage: 2.5 MILLIGRAM DAILY; QD,THERAPY START DATE:THERAPY END DATE :ASKU
     Route: 065
  8. LOVENOX [Suspect]
     Active Substance: ENOXAPARIN SODIUM
     Dosage: THERAPY START DATE:THERAPY END DATE :ASKU
     Route: 065
  9. BEVACIZUMAB [Suspect]
     Active Substance: BEVACIZUMAB
     Dosage: 442.5 MG,THERAPY END DATE :ASKU
     Route: 042
     Dates: start: 20210502
  10. DEXTROSE\POTASSIUM CHLORIDE\SODIUM CHLORIDE [Concomitant]
     Active Substance: DEXTROSE\POTASSIUM CHLORIDE\SODIUM CHLORIDE
     Dosage: 500ML/24H,THERAPY START DATE:THERAPY END DATE :ASKU
  11. NICARDIPINE HYDROCHLORIDE [Concomitant]
     Active Substance: NICARDIPINE HYDROCHLORIDE
     Dosage: 20 UNK, TID,THERAPY START DATE:THERAPY END DATE :ASKU
  12. CERNEVIT [Concomitant]
     Active Substance: VITAMINS
     Dosage: THERAPY START DATE:THERAPY END DATE:ASKU
  13. IRON\MINERALS\POTASSIUM IOD\SODIUM FLUORIDE\SODIUM MOLYBDATE\SODIUM SE [Concomitant]
     Active Substance: IRON\MINERALS\POTASSIUM IOD\SODIUM FLUORIDE\SODIUM MOLYBDATE\SODIUM SELENITE\ZINC
     Dosage: UNK,THERAPY START DATE:THERAPY END DATE :ASKU
  14. METFORMIN HYDROCHLORIDE\VILDAGLIPTIN [Concomitant]
     Active Substance: METFORMIN HYDROCHLORIDE\VILDAGLIPTIN
     Dosage: 50/100 MG UNK,THERAPY START DATE:THERAPY END DATE :ASKU
  15. URAPIDIL [Concomitant]
     Active Substance: URAPIDIL
     Dosage: 90 MILLIGRAM DAILY; TID,THERAPY START DATE :THERAPY END DATE:ASKU
  16. PYRIDOXINE HYDROCHLORIDE\THIAMINE HYDROCHLORIDE [Concomitant]
     Active Substance: PYRIDOXINE HYDROCHLORIDE\THIAMINE HYDROCHLORIDE
     Dosage: THERAPY START DATE :THERAPY END DATE:ASKU

REACTIONS (7)
  - Ureteric compression [Unknown]
  - Haematoma muscle [Unknown]
  - Abdominal pain [Unknown]
  - Muscular weakness [Unknown]
  - Pyelocaliectasis [Unknown]
  - Pain in extremity [Unknown]
  - Arthralgia [Unknown]

NARRATIVE: CASE EVENT DATE: 20210522
